FAERS Safety Report 8837600 (Version 1)
Quarter: 2012Q4

REPORT INFORMATION
  Report Type: 
  Country: US (occurrence: US)
  Receive Date: 20121012
  Receipt Date: 20121012
  Transmission Date: 20130627
  Serious: Yes (Other)
  Sender: FDA-Public Use
  Company Number: US-009507513-2010SP003304

PATIENT

DRUGS (3)
  1. NUVARING [Suspect]
     Indication: MENSTRUAL CYCLE MANAGEMENT
     Dates: start: 200305, end: 200801
  2. NUVARING [Suspect]
     Indication: MENORRHAGIA
     Dates: start: 20110608
  3. NUVARING [Suspect]
     Indication: CONTRACEPTION

REACTIONS (17)
  - Smear cervix abnormal [Unknown]
  - Polycystic ovaries [Unknown]
  - Transient ischaemic attack [Unknown]
  - Hypertension [Not Recovered/Not Resolved]
  - Rhinorrhoea [Unknown]
  - Chest pain [Unknown]
  - Hirsutism [Unknown]
  - Hidradenitis [Unknown]
  - Bronchitis [Unknown]
  - Pharyngitis [Unknown]
  - Papilloma viral infection [Unknown]
  - Endodontic procedure [Unknown]
  - Fatigue [Unknown]
  - Nausea [Unknown]
  - Malaise [Unknown]
  - Migraine [Recovered/Resolved]
  - Bronchitis [Unknown]
